FAERS Safety Report 5634004-8 (Version None)
Quarter: 2008Q1

REPORT INFORMATION
  Report Type: 
  Country: None (occurrence: None)
  Receive Date: 20080221
  Receipt Date: 20080213
  Transmission Date: 20080703
  Serious: Yes (Disabling)
  Sender: FDA-Public Use
  Company Number: US-MERCK-0802USA03134

PATIENT
  Age: 75 Year
  Sex: Female

DRUGS (5)
  1. ZOCOR [Suspect]
     Indication: LOW DENSITY LIPOPROTEIN INCREASED
     Route: 048
     Dates: start: 20080116
  2. ESTROGENS (UNSPECIFIED) [Concomitant]
     Route: 067
  3. CALCIUM (UNSPECIFIED) [Concomitant]
     Route: 065
  4. VITAMIN D (UNSPECIFIED) [Concomitant]
     Route: 065
  5. MAGNESIUM (UNSPECIFIED) [Concomitant]
     Route: 065

REACTIONS (2)
  - ERYTHEMA [None]
  - NAIL BED TENDERNESS [None]
